FAERS Safety Report 9873863 (Version 1)
Quarter: 2014Q1

REPORT INFORMATION
  Report Type: Other
  Country: US (occurrence: US)
  Receive Date: 20140206
  Receipt Date: 20140206
  Transmission Date: 20141002
  Serious: No
  Sender: FDA-Public Use
  Company Number: US-ACORDA-ACO_34503_2013

PATIENT
  Sex: Female
  Weight: 72.56 kg

DRUGS (4)
  1. AMPYRA [Suspect]
     Indication: GAIT DISTURBANCE
     Dosage: 10 MG, Q 12 HRS
     Route: 048
     Dates: start: 20110303, end: 20130213
  2. COPAXONE [Suspect]
     Indication: MULTIPLE SCLEROSIS
     Dosage: 20 MG, QD
     Route: 058
     Dates: end: 201302
  3. ALL OTHER NON-THERAPEUTIC PRODUCTS [Concomitant]
     Indication: ASTHMA
     Dosage: UNK
  4. ALL OTHER NON-THERAPEUTIC PRODUCTS [Concomitant]
     Indication: CHRONIC OBSTRUCTIVE PULMONARY DISEASE

REACTIONS (3)
  - Peroneal nerve palsy [Unknown]
  - Gait disturbance [Unknown]
  - Drug effect decreased [Unknown]
